FAERS Safety Report 14845923 (Version 7)
Quarter: 2020Q3

REPORT INFORMATION
  Report Type: Other
  Country: BE (occurrence: BE)
  Receive Date: 20180504
  Receipt Date: 20200818
  Transmission Date: 20201102
  Serious: Yes (Other)
  Sender: FDA-Public Use
  Company Number: BE-ROCHE-2113377

PATIENT
  Age: 76 Year
  Sex: Male
  Weight: 85.3 kg

DRUGS (24)
  1. PEGYLATED LIPOSOMAL IRINOTECAN [Suspect]
     Active Substance: IRINOTECAN
     Indication: COLORECTAL CANCER METASTATIC
     Dosage: DATE OF RECENT DOSE: 13/JUN/2017
     Route: 042
     Dates: start: 20161213
  2. LEUCOVORIN. [Suspect]
     Active Substance: LEUCOVORIN
     Indication: COLORECTAL CANCER METASTATIC
     Dosage: 2 OT, QW (1 2 WEEK )?DATE OF RECENT DOSE: 13/JUN/2017
     Route: 042
     Dates: start: 20161213
  3. BISOPROLOL FUMARATE. [Concomitant]
     Active Substance: BISOPROLOL FUMARATE
     Indication: ORTHOSTATIC HYPOTENSION
     Route: 048
     Dates: end: 20170613
  4. IRINOTECAN [Suspect]
     Active Substance: IRINOTECAN
     Indication: COLORECTAL CANCER METASTATIC
     Dosage: 2 OT, QW (2X A WEEK)?MOST RECENT DOSE ON 13/JUN/2017
     Route: 042
     Dates: start: 20161213
  5. MEDROL [Concomitant]
     Active Substance: METHYLPREDNISOLONE
     Indication: PRODUCT USED FOR UNKNOWN INDICATION
     Route: 065
     Dates: start: 20170623
  6. ALDACTONE [Concomitant]
     Active Substance: SPIRONOLACTONE
     Indication: PRODUCT USED FOR UNKNOWN INDICATION
     Route: 048
  7. ALOXI [Concomitant]
     Active Substance: PALONOSETRON HYDROCHLORIDE
     Indication: PROPHYLAXIS
     Route: 042
     Dates: start: 20161213, end: 20170613
  8. DEANXIT [Concomitant]
     Active Substance: FLUPENTIXOL DIHYDROCHLORIDE\MELITRACEN HYDROCHLORIDE
     Indication: PROPHYLAXIS
     Dosage: 10 MG, UNK
     Route: 048
  9. ATROPINE. [Concomitant]
     Active Substance: ATROPINE
     Indication: PROPHYLAXIS
     Route: 058
     Dates: start: 20161213, end: 20170613
  10. ELIQUIS [Concomitant]
     Active Substance: APIXABAN
     Indication: PROPHYLAXIS
     Dosage: 2.5 MG, UNK
     Route: 048
  11. 5 FLUORO URACIL [Suspect]
     Active Substance: FLUOROURACIL
     Indication: COLORECTAL CANCER METASTATIC
     Dosage: 2 OT, QW (1 2 WEEK UNK)?DATE OF RECENT DOSE: 13/JUN/2017
     Route: 042
     Dates: start: 20161213
  12. VORINA [Concomitant]
     Indication: PROPHYLAXIS
     Route: 042
     Dates: start: 20161213, end: 20170613
  13. PANTOMED (BELGIUM) [Concomitant]
     Active Substance: PANTOPRAZOLE SODIUM
     Indication: PROPHYLAXIS
     Route: 048
  14. CRESTOR [Concomitant]
     Active Substance: ROSUVASTATIN CALCIUM
     Indication: PRODUCT USED FOR UNKNOWN INDICATION
     Route: 048
  15. BEVACIZUMAB. [Suspect]
     Active Substance: BEVACIZUMAB
     Indication: COLORECTAL CANCER METASTATIC
     Dosage: 2 OT, QW (2X A WEEK)
     Route: 042
     Dates: start: 20161213
  16. LEUCOVORIN. [Suspect]
     Active Substance: LEUCOVORIN
     Route: 042
  17. BISOPROLOL FUMARATE. [Concomitant]
     Active Substance: BISOPROLOL FUMARATE
     Indication: ORTHOSTATIC HYPOTENSION
     Dosage: 2.5 MG, UNK
     Route: 065
     Dates: start: 20170613
  18. 5 FLUORO URACIL [Suspect]
     Active Substance: FLUOROURACIL
     Route: 042
  19. BURINEX [Concomitant]
     Active Substance: BUMETANIDE
     Indication: PRODUCT USED FOR UNKNOWN INDICATION
     Route: 048
  20. AACIDEXAM [Concomitant]
     Active Substance: DEXAMETHASONE
     Indication: PROPHYLAXIS
     Route: 042
     Dates: start: 20161213, end: 20170613
  21. MEDROL [Concomitant]
     Active Substance: METHYLPREDNISOLONE
     Route: 065
     Dates: start: 20170530, end: 20170623
  22. ALDACTONE [Concomitant]
     Active Substance: SPIRONOLACTONE
     Indication: PRODUCT USED FOR UNKNOWN INDICATION
     Route: 048
  23. EMCONCOR MITIS [Concomitant]
     Indication: ORTHOSTATIC HYPOTENSION
     Dosage: 2.5 MG, UNK
     Route: 065
     Dates: start: 20170613
  24. EMCONCOR MITIS [Concomitant]
     Indication: ORTHOSTATIC HYPOTENSION
     Route: 048
     Dates: end: 20170613

REACTIONS (12)
  - Epistaxis [Recovered/Resolved]
  - Orthostatic hypotension [Not Recovered/Not Resolved]
  - Dyspnoea [Not Recovered/Not Resolved]
  - Diarrhoea [Not Recovered/Not Resolved]
  - Dysphonia [Not Recovered/Not Resolved]
  - C-reactive protein increased [Not Recovered/Not Resolved]
  - Off label use [Unknown]
  - Neutropenia [Recovered/Resolved]
  - General physical health deterioration [Not Recovered/Not Resolved]
  - Decreased appetite [Not Recovered/Not Resolved]
  - Intentional product use issue [Unknown]
  - Blood creatinine decreased [Recovered/Resolved]

NARRATIVE: CASE EVENT DATE: 20161227
